FAERS Safety Report 5699361-5 (Version None)
Quarter: 2008Q2

REPORT INFORMATION
  Report Type: 
  Country: None (occurrence: None)
  Receive Date: 20080404
  Receipt Date: 20080327
  Transmission Date: 20081010
  Serious: Yes (Life-Threatening, Hospitalization)
  Sender: FDA-Public Use
  Company Number: TPG2008A00254

PATIENT
  Age: 70 Year
  Sex: Male

DRUGS (4)
  1. ACTOS [Suspect]
     Indication: TYPE 2 DIABETES MELLITUS
     Dosage: 30 MG PER ORAL
     Route: 048
     Dates: start: 20070905, end: 20080212
  2. FAST-ACTING INSULIN (INSULINS AND ANALOGUES, FAST-ACTING) [Concomitant]
  3. LONG-ACTING INSULIN (INSULINS AND ANALOGUES, LONG-ACTING) [Concomitant]
  4. FALITHROM (PHENPROCOUMON) [Concomitant]

REACTIONS (4)
  - BLOOD CREATININE INCREASED [None]
  - CORONARY ARTERY STENOSIS [None]
  - HYPERKALAEMIA [None]
  - MYOCARDIAL INFARCTION [None]
